FAERS Safety Report 9731231 (Version 1)
Quarter: 2013Q4

REPORT INFORMATION
  Report Type: Report from Study
  Country: US (occurrence: US)
  Receive Date: 20131205
  Receipt Date: 20131205
  Transmission Date: 20140711
  Serious: Yes (Death, Other)
  Sender: FDA-Public Use
  Company Number: US-ROCHE-1309630

PATIENT
  Age: 58 Year
  Sex: Male

DRUGS (5)
  1. ACTIVASE [Suspect]
     Indication: PULMONARY EMBOLISM
     Route: 065
  2. ACTIVASE [Suspect]
     Indication: CARDIAC ARREST
  3. PLAVIX [Concomitant]
     Dosage: ^BOTTLE WAS EMPTY^
     Route: 065
  4. EPINEPHRINE [Concomitant]
  5. DOPAMINE [Concomitant]

REACTIONS (11)
  - Death [Fatal]
  - Chest pain [Unknown]
  - Dyspnoea [Unknown]
  - Cardio-respiratory arrest [Unknown]
  - Abdominal distension [Unknown]
  - Oedema peripheral [Unknown]
  - Pneumothorax [Unknown]
  - Aortic dissection [Unknown]
  - Acute coronary syndrome [Unknown]
  - Tachycardia [Unknown]
  - Respiratory distress [Unknown]
